FAERS Safety Report 13637224 (Version 3)
Quarter: 2017Q3

REPORT INFORMATION
  Report Type: Spontaneous
  Country: JP (occurrence: JP)
  Receive Date: 20170609
  Receipt Date: 20170913
  Transmission Date: 20171127
  Serious: Yes (Death, Hospitalization, Other)
  Sender: FDA-Public Use
  Company Number: JP-BAYER-2017-104181

PATIENT
  Age: 74 Year
  Sex: Male
  Weight: 44 kg

DRUGS (11)
  1. OXINORM [OXYCODONE HYDROCHLORIDE] [Concomitant]
     Dosage: DAILY DOSE 5 MG
     Route: 048
     Dates: end: 20170531
  2. DAIKENTYUTO [Concomitant]
     Active Substance: HERBALS
     Dosage: DAILY DOSE 15 G
     Route: 048
     Dates: start: 20170214, end: 20170531
  3. GASTER [Concomitant]
     Active Substance: FAMOTIDINE
     Dosage: DAILY DOSE 40 MG
     Route: 048
     Dates: end: 20170209
  4. FENTANYL CITRATE. [Concomitant]
     Active Substance: FENTANYL CITRATE
     Dosage: DAILY DOSE 4 MG
     Route: 062
     Dates: end: 20170601
  5. STIVARGA [Suspect]
     Active Substance: REGORAFENIB
     Indication: COLORECTAL CANCER RECURRENT
     Dosage: 160 MG, QD
     Route: 048
     Dates: start: 201704, end: 2017
  6. GASCON [Concomitant]
     Active Substance: DIMETHICONE
     Dosage: DAILY DOSE 120 MG
     Route: 048
     Dates: start: 20170228, end: 20170531
  7. STIVARGA [Suspect]
     Active Substance: REGORAFENIB
     Indication: COLORECTAL CANCER RECURRENT
     Dosage: DAILY DOSE 120 MG
     Route: 048
     Dates: start: 20161203, end: 20170209
  8. STIVARGA [Suspect]
     Active Substance: REGORAFENIB
     Indication: COLORECTAL CANCER RECURRENT
     Dosage: DAILY DOSE 120 MG
     Route: 048
     Dates: start: 20170503, end: 20170516
  9. DUROTEP [Concomitant]
     Active Substance: FENTANYL
     Dosage: DAILY DOSE 4.2 MG
     Route: 062
     Dates: end: 20170209
  10. FENTANYL CITRATE. [Concomitant]
     Active Substance: FENTANYL CITRATE
     Dosage: DAILY DOSE 2 MG
     Route: 062
     Dates: start: 20170210
  11. SENNOSIDE [Concomitant]
     Active Substance: SENNOSIDES
     Dosage: DAILY DOSE 12 MG
     Route: 048
     Dates: start: 20170228, end: 20170531

REACTIONS (6)
  - Abdominal pain [Fatal]
  - Depressed level of consciousness [None]
  - Small intestinal perforation [Fatal]
  - Stress cardiomyopathy [Not Recovered/Not Resolved]
  - Left ventricular dysfunction [Not Recovered/Not Resolved]
  - Colorectal cancer recurrent [None]

NARRATIVE: CASE EVENT DATE: 20170527
